FAERS Safety Report 6283151-9 (Version None)
Quarter: 2009Q3

REPORT INFORMATION
  Report Type: 
  Country: None (occurrence: None)
  Receive Date: 20090724
  Receipt Date: 20090716
  Transmission Date: 20100115
  Serious: Yes (Life-Threatening, Hospitalization)
  Sender: FDA-Public Use
  Company Number: B0534575A

PATIENT
  Sex: Female
  Weight: 50 kg

DRUGS (8)
  1. VALTREX [Suspect]
     Indication: HERPES ZOSTER OTICUS
     Dosage: 1000MG THREE TIMES PER DAY
     Route: 048
     Dates: start: 20080818, end: 20080823
  2. UNKNOWN DRUG [Concomitant]
     Indication: ATRIAL FIBRILLATION
     Dosage: .125MG PER DAY
     Route: 048
     Dates: start: 20080818, end: 20080823
  3. ADETPHOS [Concomitant]
     Indication: DIZZINESS
     Route: 048
     Dates: start: 20080818, end: 20080823
  4. CYANOCOBALAMIN [Concomitant]
     Indication: DIZZINESS
     Dosage: 1500MCG PER DAY
     Route: 048
     Dates: start: 20080818, end: 20080823
  5. OMEPRAL [Concomitant]
     Indication: GASTRIC ULCER
     Dosage: 10MG PER DAY
     Route: 048
     Dates: start: 20080818, end: 20080823
  6. ALOSENN [Concomitant]
     Indication: CONSTIPATION
     Dosage: 1G PER DAY
     Route: 048
     Dates: start: 20080818, end: 20080823
  7. HERBESSER R [Concomitant]
     Indication: ATRIAL FIBRILLATION
     Dosage: 100MG PER DAY
     Route: 048
     Dates: start: 20080818, end: 20080823
  8. OLMETEC [Concomitant]
     Indication: HYPERTENSION
     Dosage: 20MG PER DAY
     Route: 048
     Dates: start: 20080818, end: 20080823

REACTIONS (10)
  - ALTERED STATE OF CONSCIOUSNESS [None]
  - DECREASED APPETITE [None]
  - DEHYDRATION [None]
  - DEPRESSED LEVEL OF CONSCIOUSNESS [None]
  - DIZZINESS [None]
  - ENCEPHALOPATHY [None]
  - MALAISE [None]
  - NAUSEA [None]
  - RENAL FAILURE ACUTE [None]
  - THERAPEUTIC AGENT TOXICITY [None]
